FAERS Safety Report 4822755-4 (Version None)
Quarter: 2005Q4

REPORT INFORMATION
  Report Type: 
  Country: None (occurrence: None)
  Receive Date: 20051107
  Receipt Date: 20051107
  Transmission Date: 20060501
  Serious: Yes (Life-Threatening)
  Sender: FDA-Public Use
  Company Number: None

PATIENT
  Age: 76 Year
  Sex: Female
  Weight: 58.9676 kg

DRUGS (1)
  1. CLEOCIN [Suspect]
     Indication: TOOTH ABSCESS
     Dosage: 21       TID    PO
     Route: 048
     Dates: start: 20050924, end: 20051001

REACTIONS (5)
  - ASTHENIA [None]
  - CLOSTRIDIUM COLITIS [None]
  - DIFFICULTY IN WALKING [None]
  - FATIGUE [None]
  - PYREXIA [None]
